FAERS Safety Report 5133103-7 (Version None)
Quarter: 2006Q4

REPORT INFORMATION
  Report Type: 
  Country: None (occurrence: None)
  Receive Date: 20061017
  Receipt Date: 20060929
  Transmission Date: 20070319
  Serious: Yes (Other)
  Sender: FDA-Public Use
  Company Number: 2006SP003246

PATIENT
  Age: 60 Year
  Sex: Male

DRUGS (2)
  1. TEMODAL [Suspect]
     Indication: BRAIN NEOPLASM MALIGNANT
     Dosage: 150 MG/M2; QD;  200 MG/M2; QD
  2. CORTOCOTHERAPY (NO PREF. NAME) [Suspect]
     Indication: BRAIN NEOPLASM MALIGNANT

REACTIONS (1)
  - KAPOSI'S SARCOMA [None]
